FAERS Safety Report 21388259 (Version 2)
Quarter: 2022Q3

REPORT INFORMATION
  Report Type: Spontaneous
  Country: JP (occurrence: JP)
  Receive Date: 20220928
  Receipt Date: 20220930
  Transmission Date: 20221027
  Serious: Yes (Death, Other)
  Sender: FDA-Public Use
  Company Number: JP-PFIZER INC-PV202200072183

PATIENT
  Age: 82 Year
  Sex: Male
  Weight: 56 kg

DRUGS (12)
  1. BILASTINE [Suspect]
     Active Substance: BILASTINE
     Indication: Pruritus
     Dosage: 20 MILLIGRAM, QD
     Route: 048
     Dates: end: 20220415
  2. LORAZEPAM [Suspect]
     Active Substance: LORAZEPAM
     Indication: Nausea
     Dosage: 0.5 MILLIGRAM, SINGLE
     Route: 048
     Dates: start: 20220411, end: 20220411
  3. CARBOPLATIN [Suspect]
     Active Substance: CARBOPLATIN
     Indication: Non-small cell lung cancer stage IV
     Dosage: 1 DOSAGE FORM, SINGLE
     Route: 065
     Dates: start: 20220408, end: 20220408
  4. KEYTRUDA [Suspect]
     Active Substance: PEMBROLIZUMAB
     Indication: Non-small cell lung cancer stage IV
     Dosage: 200 MILLIGRAM, SINGLE
     Route: 065
     Dates: start: 20220408, end: 20220408
  5. PEMETREXED DISODIUM [Suspect]
     Active Substance: PEMETREXED DISODIUM
     Indication: Non-small cell lung cancer stage IV
     Dosage: 600 MILLIGRAM/SQ. METER, SINGLE
     Route: 065
     Dates: start: 20220408, end: 20220408
  6. CELESTAMINE [Suspect]
     Active Substance: BETAMETHASONE\DEXCHLORPHENIRAMINE MALEATE
     Indication: Pruritus
     Dosage: 1 DOSAGE FORM, QD
     Route: 048
     Dates: end: 20220415
  7. FEBUXOSTAT [Suspect]
     Active Substance: FEBUXOSTAT
     Indication: Hyperuricaemia
     Dosage: 20 MILLIGRAM, QD
     Route: 048
     Dates: end: 20220415
  8. MORPHINE HYDROCHLORIDE [Suspect]
     Active Substance: MORPHINE HYDROCHLORIDE
     Indication: Pain
     Dosage: 2.5 MILLIGRAM, QD
     Route: 048
     Dates: start: 20220323, end: 20220415
  9. OXYCODONE HYDROCHLORIDE [Suspect]
     Active Substance: OXYCODONE HYDROCHLORIDE
     Indication: Pain
     Dosage: 20 MILLIGRAM, QD
     Route: 048
     Dates: start: 20220323, end: 20220415
  10. VITAMINS NOS [Suspect]
     Active Substance: VITAMINS
     Dosage: 1 GRAM, QD
     Route: 048
     Dates: start: 20220402, end: 20220415
  11. SODIUM BICARBONATE\SODIUM PHOSPHATE, MONOBASIC [Suspect]
     Active Substance: SODIUM BICARBONATE\SODIUM PHOSPHATE, MONOBASIC
     Indication: Constipation
     Dosage: 1 DOSAGE FORM, SINGLE
     Route: 054
     Dates: start: 20220411, end: 20220411
  12. METOCLOPRAMIDE [Suspect]
     Active Substance: METOCLOPRAMIDE
     Indication: Nausea
     Dosage: 5 MILLIGRAM, SINGLE
     Route: 048
     Dates: start: 20220415, end: 20220415

REACTIONS (8)
  - Upper gastrointestinal haemorrhage [Fatal]
  - Dyspnoea [Unknown]
  - Constipation [Unknown]
  - Decreased appetite [Unknown]
  - Fall [Unknown]
  - Malaise [Unknown]
  - Nausea [Unknown]
  - Dizziness postural [Unknown]

NARRATIVE: CASE EVENT DATE: 20220415
